FAERS Safety Report 5072921-0 (Version None)
Quarter: 2006Q3

REPORT INFORMATION
  Report Type: 
  Country: None (occurrence: None)
  Receive Date: 20060802
  Receipt Date: 20060720
  Transmission Date: 20061208
  Serious: Yes (Death, Other)
  Sender: FDA-Public Use
  Company Number: 8018131

PATIENT

DRUGS (3)
  1. KEPPRA [Suspect]
     Dosage: 4 G /D TRP
     Route: 064
  2. VPA   (VALPROIC ACID) [Suspect]
     Dosage: 5 G /D TRP
     Route: 064
  3. DPH                (DIPHENHYDRAMINE) [Suspect]
     Dosage: TRP
     Route: 064

REACTIONS (4)
  - ABORTION [None]
  - CONGENITAL ANOMALY [None]
  - DRUG EXPOSURE DURING PREGNANCY [None]
  - FOETAL CARDIAC DISORDER [None]
